FAERS Safety Report 9989234 (Version 2)
Quarter: 2014Q1

REPORT INFORMATION
  Report Type: Report from Study
  Country: JP (occurrence: JP)
  Receive Date: 20140310
  Receipt Date: 20140324
  Transmission Date: 20141002
  Serious: Yes (Death, Hospitalization, Other)
  Sender: FDA-Public Use
  Company Number: JP-009507513-1403JPN002459

PATIENT
  Age: 75 Year
  Sex: Male
  Weight: 47 kg

DRUGS (17)
  1. CANCIDAS FOR INTRAVENOUS DRIP INFUSION 70MG [Suspect]
     Indication: FEBRILE NEUTROPENIA
     Dosage: 70 MG, QD
     Route: 041
     Dates: start: 20140123, end: 20140123
  2. CANCIDAS FOR INTRAVENOUS DRIP INFUSION 50MG [Suspect]
     Indication: FEBRILE NEUTROPENIA
     Dosage: 50 MG, QD
     Route: 041
     Dates: start: 20140124, end: 20140207
  3. FLUCONAZOLE [Concomitant]
     Indication: FEBRILE NEUTROPENIA
     Dosage: 100 MG, DAILY, DIVIDED DOSE FREQUENCY UNKNOWN
     Route: 048
     Dates: start: 20131025, end: 20140123
  4. METGLUCO [Concomitant]
     Indication: DIABETES MELLITUS
     Dosage: 250 MG, BID
     Route: 048
     Dates: end: 20140207
  5. TAMSULOSIN HYDROCHLORIDE [Concomitant]
     Indication: BENIGN PROSTATIC HYPERPLASIA
     Dosage: 0.2 MG, QD
     Route: 048
     Dates: end: 20140216
  6. MAGMITT [Concomitant]
     Indication: CONSTIPATION
     Dosage: 330 MG, TID
     Route: 048
     Dates: end: 20140216
  7. NEXIUM [Concomitant]
     Indication: GASTRIC ULCER
     Dosage: 20 MG, QD
     Route: 048
     Dates: start: 20131003, end: 20140221
  8. DAIPHEN [Concomitant]
     Indication: PROPHYLAXIS
     Dosage: 1 G, QD
     Route: 048
     Dates: start: 20131025, end: 20140216
  9. ISCOTIN [Concomitant]
     Indication: PROPHYLAXIS
     Dosage: 300 MG, QD
     Route: 048
     Dates: start: 20131025, end: 20140216
  10. PONTAL [Concomitant]
     Indication: ORAL DISORDER
     Dosage: 10 ML, QID
     Route: 048
     Dates: start: 20130119, end: 20140216
  11. BROTIZOLAM [Concomitant]
     Indication: INSOMNIA
     Dosage: 250 MICROGRAM, QD
     Route: 048
     Dates: start: 20130115, end: 20140216
  12. OXYCONTIN [Concomitant]
     Indication: ORAL DISORDER
     Dosage: 5 MG, BID
     Route: 048
     Dates: start: 20130122, end: 20140216
  13. VICCLOX [Concomitant]
     Indication: PROPHYLAXIS
     Dosage: 250 MG, BID
     Route: 051
     Dates: start: 20140119, end: 20140131
  14. VITAMEDIN INTRAVENOUS [Concomitant]
     Indication: PROPHYLAXIS
     Dosage: 1 DF, QD
     Route: 051
     Dates: start: 20140111
  15. NEUTROGIN [Concomitant]
     Indication: WHITE BLOOD CELL COUNT DECREASED
     Dosage: 100 MICROGRAM, QD
     Route: 051
     Dates: start: 20140120, end: 20140202
  16. MEROPEN [Concomitant]
     Indication: FEBRILE NEUTROPENIA
     Dosage: 1 G, TID
     Route: 051
     Dates: start: 20140123, end: 20140207
  17. EXACIN [Concomitant]
     Indication: FEBRILE NEUTROPENIA
     Dosage: 400 MG, QD
     Route: 051
     Dates: start: 20140123, end: 20140124

REACTIONS (3)
  - Adult T-cell lymphoma/leukaemia [Fatal]
  - Sepsis [Recovered/Resolved]
  - Hypokalaemia [Recovered/Resolved]
